FAERS Safety Report 18858293 (Version 1)
Quarter: 2021Q1

REPORT INFORMATION
  Report Type: Spontaneous
  Country: FR (occurrence: FR)
  Receive Date: 20210208
  Receipt Date: 20210208
  Transmission Date: 20210420
  Serious: Yes (Congenital Anomaly)
  Sender: FDA-Public Use
  Company Number: FR-UCBSA-2021004194

PATIENT
  Age: 0 Year
  Sex: Male
  Weight: 2.33 kg

DRUGS (2)
  1. KEPPRA [Suspect]
     Active Substance: LEVETIRACETAM
     Indication: EPILEPSY
     Dosage: 750 MILLIGRAM, EV 2 DAYS (QOD)
     Route: 064
     Dates: start: 20190727, end: 20200325
  2. CANNABIS [Suspect]
     Active Substance: CANNABIS SATIVA SUBSP. INDICA TOP
     Indication: PRODUCT USED FOR UNKNOWN INDICATION
     Dosage: UNK
     Route: 064

REACTIONS (8)
  - Premature baby [Recovered/Resolved]
  - Congenital genitourinary abnormality [Recovered/Resolved]
  - Product use issue [Unknown]
  - Maternal exposure during pregnancy [Unknown]
  - Foetal growth restriction [Recovered/Resolved]
  - Renal aplasia [Recovered/Resolved]
  - Respiratory distress [Recovered/Resolved]
  - Portal vein thrombosis [Recovered/Resolved]

NARRATIVE: CASE EVENT DATE: 2019
